FAERS Safety Report 22646594 (Version 1)
Quarter: 2023Q2

REPORT INFORMATION
  Report Type: Spontaneous
  Country: NO (occurrence: NO)
  Receive Date: 20230627
  Receipt Date: 20230627
  Transmission Date: 20230722
  Serious: Yes (Other)
  Sender: FDA-Public Use
  Company Number: None

PATIENT
  Age: 15 Year
  Sex: Female

DRUGS (1)
  1. NAPROXEN [Suspect]
     Active Substance: NAPROXEN
     Indication: Dysmenorrhoea
     Dosage: UNK, 500 MG IN MORNING, AFTERWAR
     Route: 048
     Dates: start: 202301, end: 202304

REACTIONS (6)
  - Gastric ulcer [Recovered/Resolved]
  - Chest pain [Recovered/Resolved]
  - Fatigue [Recovered/Resolved]
  - Poor quality sleep [Recovered/Resolved]
  - Diaphragmalgia [Recovered/Resolved]
  - Oesophageal disorder [Recovered/Resolved]

NARRATIVE: CASE EVENT DATE: 20230401
